FAERS Safety Report 11420133 (Version 3)
Quarter: 2015Q4

REPORT INFORMATION
  Report Type: Report from Study
  Country: DE (occurrence: DE)
  Receive Date: 20150826
  Receipt Date: 20151006
  Transmission Date: 20160304
  Serious: Yes (Hospitalization, Other)
  Sender: FDA-Public Use
  Company Number: DE-GLAXOSMITHKLINE-DE2015GSK120261

PATIENT
  Age: 51 Year
  Sex: Female
  Weight: 48 kg

DRUGS (2)
  1. TYKERB [Suspect]
     Active Substance: LAPATINIB DITOSYLATE
     Indication: BREAST CANCER
     Dosage: UNK
     Dates: start: 201407, end: 20150812
  2. EXEMESTAN [Suspect]
     Active Substance: EXEMESTANE
     Indication: BREAST CANCER

REACTIONS (8)
  - Pulmonary hypertension [Unknown]
  - Dyspnoea [Unknown]
  - Pleural effusion [Unknown]
  - Chest discomfort [Unknown]
  - Tachypnoea [Unknown]
  - Respiratory failure [Unknown]
  - Cyanosis [Unknown]
  - Cough [Unknown]
